FAERS Safety Report 8431791-0 (Version None)
Quarter: 2012Q2

REPORT INFORMATION
  Report Type: 
  Country: None (occurrence: None)
  Receive Date: 20120606
  Receipt Date: 20120524
  Transmission Date: 20120825
  Serious: Yes (Death)
  Sender: FDA-Public Use
  Company Number: 2012HGS-003672

PATIENT
  Age: 29 Year
  Sex: Female
  Weight: 81.6 kg

DRUGS (15)
  1. OXYCODONE HCL [Concomitant]
  2. MULTIVITAMIN (VIGRAN) (ERGOCALCIFEROL, ASCORBIC ACID, PYRIDOXINE HYDRO [Concomitant]
  3. LYRICA [Concomitant]
  4. ALBUTEROL (SALBUTAMOL) (SALBUTAMOL) [Concomitant]
  5. FLOVENT (FLUTICASONE PROPIONATE) (FLUTICASONE PROPIONATE) [Concomitant]
  6. IMITREX (SUMATRIPTAN) (SUMATRIPTAN) [Concomitant]
  7. TUMS (CALCIUM CARBONATE) (CALCIUM CARBONATE) [Concomitant]
  8. DOCUSATE SODIUM (DOCUSATE SODIUM) (DOCUSATE SODIUM) [Concomitant]
  9. SAVELLA (MILNACIPRAN HYDROCHLORIDE) (MILNACIPRAN HYDROCHLORIDE) [Concomitant]
  10. PATANOL (OLOPATADINE HYDROCHLORIDE) (OLOPATADINE HYDROCHLORIDE) [Concomitant]
  11. TYLENOL (PARACETAMOL) (PARACETAMOL) [Concomitant]
  12. BENLYSTA [Suspect]
     Indication: SYSTEMIC LUPUS ERYTHEMATOSUS
     Dosage: 1 IN 28 D, INTRAVENOUS DRIP
     Route: 041
     Dates: start: 20120420
  13. TRAMADOL HCL [Concomitant]
  14. PREDNISONE [Concomitant]
  15. GLUCOSAMINE (GLUCOSAMINE SULFATE) (GLUCOSAMINE SULFATE) [Concomitant]

REACTIONS (1)
  - CARDIAC FAILURE CONGESTIVE [None]
